FAERS Safety Report 14636698 (Version 1)
Quarter: 2018Q1

REPORT INFORMATION
  Report Type: Report from Study
  Country: FR (occurrence: FR)
  Receive Date: 20180314
  Receipt Date: 20180314
  Transmission Date: 20180509
  Serious: Yes (Other)
  Sender: FDA-Public Use
  Company Number: FR-BRISTOL-MYERS SQUIBB COMPANY-BMS-2017-068188

PATIENT
  Age: 75 Year
  Sex: Male

DRUGS (1)
  1. NIVOLUMAB [Suspect]
     Active Substance: NIVOLUMAB
     Indication: LUNG NEOPLASM MALIGNANT
     Dosage: 225 MG, Q2WK
     Route: 042
     Dates: start: 20170619

REACTIONS (7)
  - Asthenia [Recovered/Resolved]
  - Dyspepsia [Recovering/Resolving]
  - Testicular mass [Recovered/Resolved]
  - Abdominal pain [Recovered/Resolved]
  - Testicular pain [Not Recovered/Not Resolved]
  - Tongue coated [Recovered/Resolved]
  - Dizziness [Recovered/Resolved]

NARRATIVE: CASE EVENT DATE: 20170717
